FAERS Safety Report 15606193 (Version 1)
Quarter: 2018Q4

REPORT INFORMATION
  Report Type: Spontaneous
  Country: ES (occurrence: ES)
  Receive Date: 20181112
  Receipt Date: 20181112
  Transmission Date: 20190205
  Serious: Yes (Other)
  Sender: FDA-Public Use
  Company Number: ES-ROCHE-2211322

PATIENT
  Age: 23 Year
  Sex: Male
  Weight: 78 kg

DRUGS (15)
  1. RIVOTRIL [Suspect]
     Active Substance: CLONAZEPAM
     Indication: ANXIETY
     Dosage: 0.5 MG,
     Route: 048
     Dates: start: 2014
  2. OMEGA 3 [Suspect]
     Active Substance: OMEGA-3 FATTY ACIDS
     Indication: DEPRESSION
     Route: 048
     Dates: start: 2015
  3. GABAPENTINA CINFA [Suspect]
     Active Substance: GABAPENTIN
     Indication: ANXIETY
     Dosage: 300 MG,
     Route: 048
     Dates: start: 2017
  4. SEROXAT [Suspect]
     Active Substance: PAROXETINE HYDROCHLORIDE
     Indication: GENERALISED ANXIETY DISORDER
     Dosage: 20MG,
     Route: 048
     Dates: start: 2014
  5. VENLAFAXINE [Suspect]
     Active Substance: VENLAFAXINE HYDROCHLORIDE
     Indication: DEPRESSION
     Dosage: 37.5 MG
     Route: 048
     Dates: start: 2017
  6. AMOXICILLIN. [Concomitant]
     Active Substance: AMOXICILLIN
     Indication: VIRAL TONSILLITIS
     Dosage: 500 MG/125 MG
     Route: 065
     Dates: start: 20181005, end: 20181015
  7. MAGNESIO SUPER (CITRIC ACID MONOHYDRATE\MAGNESIUM CARBONATE) [Suspect]
     Active Substance: CITRIC ACID MONOHYDRATE\MAGNESIUM CARBONATE
     Indication: ASTHENIA
     Route: 048
     Dates: start: 20180601
  8. DEPRAX (SPAIN) [Suspect]
     Active Substance: TRAZODONE HYDROCHLORIDE
     Indication: DEPRESSION
     Dosage: 50 MG,
     Route: 048
     Dates: start: 2014
  9. DENUBIL [Suspect]
     Active Substance: DEANOL PIDOLATE\HEPTAMINOL HYDROCHLORIDE
     Indication: SOMNOLENCE
     Dosage: 250 MG/180 MG
     Route: 048
     Dates: start: 2018
  10. VITAMIN B COMPLEX [Suspect]
     Active Substance: CYANOCOBALAMIN\DEXPANTHENOL\NIACINAMIDE\PYRIDOXINE HYDROCHLORIDE\RIBOFLAVIN 5^-PHOSPHATE SODIUM\THIAMINE HYDROCHLORIDE\VITAMIN B COMPLEX
     Indication: ASTHENIA
     Route: 048
     Dates: start: 2008
  11. VITAMIN B6 [Suspect]
     Active Substance: PYRIDOXINE HYDROCHLORIDE
     Indication: SOMNOLENCE
     Dosage: 50 MG
     Route: 048
     Dates: start: 2018, end: 2018
  12. CISTINA [Suspect]
     Active Substance: CYSTINE
     Indication: ALOPECIA
     Route: 048
     Dates: start: 2012
  13. ORFIDAL [Suspect]
     Active Substance: LORAZEPAM
     Indication: ANXIETY
     Route: 048
     Dates: start: 2015
  14. PARACETAMOL APOTEX [Concomitant]
     Indication: VIRAL TONSILLITIS
     Dosage: 1000 MG CADA 8 HORAS
     Route: 065
     Dates: start: 20181005, end: 20181009
  15. IBUPROFENO [Concomitant]
     Active Substance: IBUPROFEN
     Indication: VIRAL TONSILLITIS
     Route: 065
     Dates: start: 20181005, end: 20181008

REACTIONS (6)
  - Somnolence [Not Recovered/Not Resolved]
  - Agitation [Not Recovered/Not Resolved]
  - Condition aggravated [Not Recovered/Not Resolved]
  - Anxiety [Not Recovered/Not Resolved]
  - Memory impairment [Not Recovered/Not Resolved]
  - Depression [Not Recovered/Not Resolved]

NARRATIVE: CASE EVENT DATE: 2014
